FAERS Safety Report 24630031 (Version 1)
Quarter: 2024Q4

REPORT INFORMATION
  Report Type: Spontaneous
  Country: US (occurrence: US)
  Receive Date: 20241118
  Receipt Date: 20241118
  Transmission Date: 20250114
  Serious: No
  Sender: GRIFOLS
  Company Number: US-IGSA-BIG0029362

PATIENT
  Sex: Male

DRUGS (14)
  1. XEMBIFY [Suspect]
     Active Substance: HUMAN IMMUNOGLOBULIN G
     Indication: Immunodeficiency common variable
     Dosage: 10 GRAM
     Route: 058
     Dates: start: 2024
  2. XEMBIFY [Suspect]
     Active Substance: HUMAN IMMUNOGLOBULIN G
     Dosage: 8 GRAM
     Route: 058
     Dates: start: 2024
  3. CLINDAMYCIN [Concomitant]
     Active Substance: CLINDAMYCIN
  4. DIFICID [Concomitant]
     Active Substance: FIDAXOMICIN
     Dosage: 200 MILLIGRAM
  5. DOXYCYCLINE [Concomitant]
     Active Substance: DOXYCYCLINE
  6. MOXIFLOXACIN [Concomitant]
     Active Substance: MOXIFLOXACIN
     Dosage: 400 MILLIGRAM
  7. LEVAQUIN [Concomitant]
     Active Substance: LEVOFLOXACIN
     Dosage: 750 MILLIGRAM
  8. CEFDINIR [Concomitant]
     Active Substance: CEFDINIR
     Dosage: 300 MILLIGRAM
  9. CIMETIDINE [Concomitant]
     Active Substance: CIMETIDINE
     Dosage: 800 MILLIGRAM
  10. FLONASE ALLERGY RELIEF [Concomitant]
     Active Substance: FLUTICASONE PROPIONATE
  11. MINOCYCLINE [Concomitant]
     Active Substance: MINOCYCLINE HYDROCHLORIDE
     Dosage: 100 MILLIGRAM
  12. PROCHLORPERAZINE HCL [Concomitant]
     Dosage: 10 MILLIGRAM
  13. PROPRANOLOL [Concomitant]
     Active Substance: PROPRANOLOL HYDROCHLORIDE
     Dosage: 20 MILLIGRAM
  14. XYZAL ALLERGY 24HR [Concomitant]
     Active Substance: LEVOCETIRIZINE DIHYDROCHLORIDE
     Dosage: 5 MILLIGRAM

REACTIONS (2)
  - Infusion site pain [Recovered/Resolved]
  - Infusion site haemorrhage [Recovered/Resolved]
